FAERS Safety Report 20619296 (Version 1)
Quarter: 2022Q1

REPORT INFORMATION
  Report Type: Spontaneous
  Country: AU (occurrence: None)
  Receive Date: 20220322
  Receipt Date: 20220322
  Transmission Date: 20220423
  Serious: Yes (Death)
  Sender: FDA-Public Use
  Company Number: AU-ROCHE-3054228

PATIENT
  Sex: Male

DRUGS (1)
  1. ESBRIET [Suspect]
     Active Substance: PIRFENIDONE
     Indication: Idiopathic pulmonary fibrosis
     Dosage: DAY 1-7 1 TABLET, DAY 8-14 2 TABLETS, DAY 15 ONWARDS 3 TABLETS.
     Route: 048

REACTIONS (3)
  - Pulmonary fibrosis [Fatal]
  - Respiratory failure [Fatal]
  - Off label use [Unknown]
